FAERS Safety Report 20632610 (Version 2)
Quarter: 2022Q4

REPORT INFORMATION
  Report Type: Report from Study
  Country: EG (occurrence: EG)
  Receive Date: 20220324
  Receipt Date: 20221207
  Transmission Date: 20230113
  Serious: Yes (Other)
  Sender: FDA-Public Use
  Company Number: EG-NOVARTISPH-NVSC2022EG055117

PATIENT
  Age: 57 Year
  Sex: Female

DRUGS (11)
  1. KISQALI [Suspect]
     Active Substance: RIBOCICLIB
     Indication: Breast cancer metastatic
     Dosage: UNK (3 TABLETS OF KISQALI 200MG DAILY FOR 21 DAYS THEN A WEEK OFF)
     Route: 048
     Dates: start: 20220101
  2. KISQALI [Suspect]
     Active Substance: RIBOCICLIB
     Dosage: 200 MG, QD ((3 TABLETS OF KISQALI 200MG DAILY FOR 21 DAYS THEN A WEEK OFF))
     Route: 048
     Dates: start: 202201
  3. KISQALI [Suspect]
     Active Substance: RIBOCICLIB
     Dosage: 200 MG
     Route: 065
  4. KISQALI [Suspect]
     Active Substance: RIBOCICLIB
     Dosage: 3 DOSAGE FORM, QD (3 TABLETS AT ONCE DAILY FOR 21 DAYS AND ONE WEEK OFF)
     Route: 065
     Dates: start: 20220110, end: 202208
  5. FEMARA [Concomitant]
     Active Substance: LETROZOLE
     Indication: Breast cancer metastatic
     Dosage: 1 DOSAGE FORM, QD (BONE CARE OR ONE ALPHA UPON AVAILABILITY)
     Route: 065
     Dates: start: 202201, end: 202208
  6. ALFACALCIDOL [Concomitant]
     Active Substance: ALFACALCIDOL
     Indication: Prophylaxis
     Dosage: 1 DOSAGE FORM, QD
     Route: 065
     Dates: start: 202201
  7. CALCIUM\VITAMIN D [Concomitant]
     Active Substance: CALCIUM\VITAMIN D
     Indication: Prophylaxis
     Dosage: 1 DOSAGE FORM, QD
     Route: 065
     Dates: start: 202201
  8. PANTOPRAZOLE SODIUM [Concomitant]
     Active Substance: PANTOPRAZOLE SODIUM
     Indication: Abdominal pain upper
     Dosage: 1 DOSAGE FORM, QD (ONE TABLET WHEN NEEDED AS PER THE PATIENT^S WORDS)
     Route: 065
     Dates: start: 20220115
  9. PANADOL [Concomitant]
     Active Substance: ACETAMINOPHEN
     Indication: Analgesic therapy
     Dosage: UNK (WHEN NEEDED AS PER THE PATIENT^S WORDS)
     Route: 065
  10. VITAMIN D [Concomitant]
     Active Substance: VITAMIN D NOS
     Indication: Supplementation therapy
     Dosage: 1 DOSAGE FORM, QD
     Route: 065
     Dates: start: 202201
  11. ZOMETA [Concomitant]
     Active Substance: ZOLEDRONIC ACID
     Indication: Metastases to bone
     Dosage: 1 DOSAGE FORM, QMO (ONE INJECTION MONTHLY)
     Route: 065
     Dates: start: 202205

REACTIONS (7)
  - Blood pressure increased [Recovering/Resolving]
  - Metastases to bone [Recovering/Resolving]
  - Renal function test abnormal [Not Recovered/Not Resolved]
  - Decreased immune responsiveness [Not Recovered/Not Resolved]
  - Haemoglobin decreased [Recovering/Resolving]
  - Liver function test decreased [Not Recovered/Not Resolved]
  - Abdominal pain upper [Recovering/Resolving]

NARRATIVE: CASE EVENT DATE: 20220101
